FAERS Safety Report 6249189-2 (Version None)
Quarter: 2009Q2

REPORT INFORMATION
  Report Type: 
  Country: None (occurrence: None)
  Receive Date: 20090629
  Receipt Date: 20090618
  Transmission Date: 20091009
  Serious: Yes (Hospitalization)
  Sender: FDA-Public Use
  Company Number: PHHY2009TW19964

PATIENT
  Sex: Male
  Weight: 61.8 kg

DRUGS (1)
  1. ICL670A ICL+DISTAB [Suspect]
     Indication: THALASSAEMIA BETA
     Dosage: 2500 MG/DAY
     Route: 048
     Dates: start: 20090203, end: 20090519

REACTIONS (3)
  - ABSCESS LIMB [None]
  - FASCIOTOMY [None]
  - STAPHYLOCOCCAL ABSCESS [None]
